FAERS Safety Report 14255192 (Version 7)
Quarter: 2018Q2

REPORT INFORMATION
  Report Type: Spontaneous
  Country: FR (occurrence: FR)
  Receive Date: 20171206
  Receipt Date: 20180427
  Transmission Date: 20180711
  Serious: Yes (Hospitalization, Other)
  Sender: FDA-Public Use
  Company Number: FR-VALIDUS PHARMACEUTICALS LLC-FR-2017VAL001623

PATIENT
  Age: 89 Year
  Sex: Female

DRUGS (11)
  1. ELIQUIS [Suspect]
     Active Substance: APIXABAN
     Indication: CEREBROVASCULAR ACCIDENT PROPHYLAXIS
  2. DIGOXINE NATIVELLE [Suspect]
     Active Substance: DIGOXIN
     Indication: CARDIAC FAILURE
     Dosage: 0.5 DF, UNK
     Route: 042
     Dates: start: 20170110, end: 20170110
  3. AMIODARONE                         /00133102/ [Suspect]
     Active Substance: AMIODARONE
     Indication: ATRIAL FIBRILLATION
     Dosage: 10 MG, BID
     Route: 065
     Dates: start: 20000101, end: 20170111
  4. DIGOXINE NATIVELLE [Suspect]
     Active Substance: DIGOXIN
     Indication: TACHYARRHYTHMIA
     Dosage: 0.5 DF, UNK
     Route: 042
     Dates: start: 20170108, end: 20170108
  5. FUROSEMIDE. [Suspect]
     Active Substance: FUROSEMIDE
     Indication: CARDIAC FAILURE
  6. FUROSEMIDE. [Suspect]
     Active Substance: FUROSEMIDE
     Indication: TACHYARRHYTHMIA
     Dosage: UNK
     Route: 065
  7. CORDARONE [Suspect]
     Active Substance: AMIODARONE HYDROCHLORIDE
     Dosage: UNK
     Route: 048
     Dates: start: 20170117
  8. DIGOXINE NATIVELLE [Suspect]
     Active Substance: DIGOXIN
     Indication: CARDIAC FAILURE
     Dosage: 0.125 MG
     Route: 048
     Dates: start: 20170111, end: 20170126
  9. FUROSEMIDE. [Suspect]
     Active Substance: FUROSEMIDE
     Indication: CARDIAC FAILURE
  10. ELIQUIS [Suspect]
     Active Substance: APIXABAN
     Indication: ATRIAL FIBRILLATION
     Dosage: 2.5 MG, BID
     Route: 048
     Dates: start: 20170117
  11. CORDARONE [Suspect]
     Active Substance: AMIODARONE HYDROCHLORIDE
     Indication: ATRIAL FIBRILLATION
     Dosage: 100 MG, BID
     Route: 048
     Dates: start: 20000101, end: 20170111

REACTIONS (9)
  - Drug level above therapeutic [Unknown]
  - Drug level increased [Unknown]
  - Tachyarrhythmia [Unknown]
  - Cardiac failure [Unknown]
  - Toxicity to various agents [Unknown]
  - Dyspnoea [Unknown]
  - Drug interaction [Unknown]
  - Orthopnoea [Unknown]
  - Overdose [Unknown]
